FAERS Safety Report 9799538 (Version 1)
Quarter: 2014Q1

REPORT INFORMATION
  Report Type: Spontaneous
  Country: US (occurrence: US)
  Receive Date: 20140106
  Receipt Date: 20140106
  Transmission Date: 20141002
  Serious: No
  Sender: FDA-Public Use
  Company Number: US-GILEAD-2010-0030137

PATIENT
  Age: 76 Year
  Sex: Male
  Weight: 96.61 kg

DRUGS (14)
  1. LETAIRIS [Suspect]
     Indication: PULMONARY ARTERIAL HYPERTENSION
     Route: 048
     Dates: start: 20090218
  2. ZOCOR [Concomitant]
  3. ALBUTEROL [Concomitant]
  4. COUMADIN [Concomitant]
  5. DIGOXIN [Concomitant]
  6. ADVAIR [Concomitant]
  7. LEXAPRO [Concomitant]
  8. SPIRIVA [Concomitant]
  9. MULTIVITAMIN [Concomitant]
  10. VITAMIN D [Concomitant]
  11. OMACOR [Concomitant]
  12. ASPIRIN [Concomitant]
  13. VITAMIN C [Concomitant]
  14. VITAMIN B COMPLEX [Concomitant]

REACTIONS (1)
  - Fatigue [Unknown]
